FAERS Safety Report 23632233 (Version 4)
Quarter: 2025Q3

REPORT INFORMATION
  Report Type: Report from Study
  Country: CA (occurrence: CA)
  Receive Date: 20240314
  Receipt Date: 20250924
  Transmission Date: 20251020
  Serious: Yes (Hospitalization, Other)
  Sender: TAKEDA
  Company Number: CA-TAKEDA-2024TUS022968

PATIENT
  Age: 41 Year
  Sex: Male

DRUGS (14)
  1. VEDOLIZUMAB [Suspect]
     Active Substance: VEDOLIZUMAB
     Indication: Crohn^s disease
  2. VEDOLIZUMAB [Suspect]
     Active Substance: VEDOLIZUMAB
  3. VEDOLIZUMAB [Suspect]
     Active Substance: VEDOLIZUMAB
  4. VEDOLIZUMAB [Suspect]
     Active Substance: VEDOLIZUMAB
  5. VEDOLIZUMAB [Suspect]
     Active Substance: VEDOLIZUMAB
  6. VEDOLIZUMAB [Suspect]
     Active Substance: VEDOLIZUMAB
  7. VEDOLIZUMAB [Suspect]
     Active Substance: VEDOLIZUMAB
  8. PREDNISONE [Concomitant]
     Active Substance: PREDNISONE
     Dates: start: 20250718, end: 20250722
  9. MIDODRINE [Concomitant]
     Active Substance: MIDODRINE
  10. METFORMIN [Concomitant]
     Active Substance: METFORMIN HYDROCHLORIDE
  11. ROSUVASTATIN [Concomitant]
     Active Substance: ROSUVASTATIN
  12. MORPHINE [Concomitant]
     Active Substance: MORPHINE
  13. MIRTAZAPINE [Concomitant]
     Active Substance: MIRTAZAPINE
  14. BUTYLSCOPOLAMINE BROMIDE [Concomitant]
     Active Substance: BUTYLSCOPOLAMINE BROMIDE

REACTIONS (10)
  - Stoma site haemorrhage [Not Recovered/Not Resolved]
  - Crohn^s disease [Unknown]
  - Abdominal tenderness [Unknown]
  - Bacterial infection [Unknown]
  - Vomiting [Unknown]
  - Pyrexia [Unknown]
  - Frequent bowel movements [Unknown]
  - Proctitis [Unknown]
  - Diarrhoea [Unknown]
  - Rash [Recovering/Resolving]

NARRATIVE: CASE EVENT DATE: 20190820
